FAERS Safety Report 7538154-0 (Version None)
Quarter: 2011Q2

REPORT INFORMATION
  Report Type: 
  Country: None (occurrence: None)
  Receive Date: 20110609
  Receipt Date: 20011204
  Transmission Date: 20111010
  Serious: Yes (Hospitalization, Other)
  Sender: FDA-Public Use
  Company Number: PHBS1997CA00628

PATIENT
  Sex: Male

DRUGS (1)
  1. CLOZAPINE [Suspect]
     Dosage: 600 MG, DAILY
     Route: 048
     Dates: start: 19950529

REACTIONS (2)
  - HODGKIN'S DISEASE [None]
  - NEUTROPENIA [None]
